FAERS Safety Report 9355557 (Version 2)
Quarter: 2013Q3

REPORT INFORMATION
  Report Type: Spontaneous
  Country: US (occurrence: US)
  Receive Date: 20130619
  Receipt Date: 20130812
  Transmission Date: 20140515
  Serious: Yes (Other)
  Sender: FDA-Public Use
  Company Number: US-PFIZER INC-2013183139

PATIENT
  Age: 41 Year
  Sex: Female

DRUGS (12)
  1. NEURONTIN [Suspect]
     Indication: CONVULSION
     Dosage: 800 MG, 3X/DAY
  2. ZOLOFT [Interacting]
     Indication: ANXIETY
     Dosage: 50 MG, 1X/DAY
     Dates: end: 2013
  3. ZOLOFT [Interacting]
     Indication: DEPRESSION
  4. DEPAKOTE [Interacting]
     Dosage: 500 MG, 2X/DAY
  5. THERMOTABS [Concomitant]
     Indication: BLOOD SODIUM ABNORMAL
     Dosage: UNK, 1X/DAY
  6. ZYRTEC [Concomitant]
     Indication: HYPERSENSITIVITY
     Dosage: 10 MG, 1X/DAY
  7. LACTULOSE [Concomitant]
     Indication: CONSTIPATION
     Dosage: UNK, 1X/DAY
  8. COLACE [Concomitant]
     Indication: CONSTIPATION
     Dosage: 100 MG, 2X/DAY
  9. LAMICTAL [Concomitant]
     Dosage: 100 MG, 2X/DAY
  10. TIMOLOL [Concomitant]
     Indication: GLAUCOMA
     Dosage: UNK, 1X/DAY
  11. TRAVATAN [Concomitant]
     Indication: GLAUCOMA
     Dosage: UNK, 1X/DAY
  12. MEDROXYPROGESTERONE [Concomitant]
     Indication: MENSTRUATION IRREGULAR
     Dosage: 150 MG, EVERY 3 MONTHS

REACTIONS (7)
  - Mental impairment [Not Recovered/Not Resolved]
  - Drug interaction [Unknown]
  - Hallucination [Not Recovered/Not Resolved]
  - Psychotic disorder [Not Recovered/Not Resolved]
  - Agitation [Unknown]
  - Mood altered [Unknown]
  - Depressed mood [Unknown]
